FAERS Safety Report 4808646-3 (Version None)
Quarter: 2005Q4

REPORT INFORMATION
  Report Type: 
  Country: None (occurrence: None)
  Receive Date: 20051021
  Receipt Date: 20040305
  Transmission Date: 20060501
  Serious: Yes (Hospitalization)
  Sender: FDA-Public Use
  Company Number: DE_040313152

PATIENT
  Age: 40 Year
  Sex: Female
  Weight: 70 kg

DRUGS (6)
  1. ZYPREXA [Suspect]
     Indication: DEPRESSION
     Dosage: 20 MG DAY
     Route: 048
     Dates: start: 20031208
  2. ZYPREXA [Suspect]
     Indication: PSYCHOTIC DISORDER
     Dosage: 20 MG DAY
     Route: 048
     Dates: start: 20031208
  3. SOLIAN               (AMISULPRIDE) [Concomitant]
  4. DIPIPERON            (PIPAMPERONE) [Concomitant]
  5. CARBAMAZEPINE [Concomitant]
  6. DIAZEPAM [Concomitant]

REACTIONS (2)
  - GALACTORRHOEA [None]
  - MENSTRUATION IRREGULAR [None]
